FAERS Safety Report 19749870 (Version 1)
Quarter: 2021Q3

REPORT INFORMATION
  Report Type: Spontaneous
  Country: US (occurrence: US)
  Receive Date: 20210826
  Receipt Date: 20210826
  Transmission Date: 20211014
  Serious: No
  Sender: FDA-Public Use
  Company Number: None

PATIENT
  Age: 61 Year
  Sex: Female
  Weight: 78.9 kg

DRUGS (10)
  1. DEXAMTHASONE 6 MG INJECTION [Concomitant]
     Dates: start: 20210822
  2. GUAIFENESIN 600 MG TABLET [Concomitant]
     Dates: start: 20210822
  3. ALBUTEROL INHALER [Concomitant]
     Active Substance: ALBUTEROL
     Dates: start: 20210822
  4. AMPICILLIN?SULBACTAM 3 GM/NS 100 ML [Concomitant]
     Dates: start: 20210822
  5. ASCORBIC ACID 500 MG TABS [Concomitant]
     Dates: start: 20210822
  6. FAMOTIDINE 20 MG TABS [Concomitant]
     Dates: start: 20210822
  7. ZINC SULFATE 220 MG CAPSULE [Concomitant]
     Dates: start: 20210822
  8. REMDESIVIR. [Suspect]
     Active Substance: REMDESIVIR
     Indication: COVID-19
     Dates: start: 20210822
  9. ENOXAPARIN 40 MG SC [Concomitant]
     Dates: start: 20210822
  10. GABAPENTIN 300 MG CAPSULE [Concomitant]
     Active Substance: GABAPENTIN
     Dates: start: 20210822

REACTIONS (2)
  - Incorrect dose administered [None]
  - Tachypnoea [None]

NARRATIVE: CASE EVENT DATE: 20210822
